FAERS Safety Report 13010878 (Version 1)
Quarter: 2016Q4

REPORT INFORMATION
  Report Type: Report from Study
  Country: IT (occurrence: IT)
  Receive Date: 20161208
  Receipt Date: 20161208
  Transmission Date: 20170207
  Serious: Yes (Death, Other)
  Sender: FDA-Public Use
  Company Number: IT-MYLANLABS-2016M1053789

PATIENT

DRUGS (6)
  1. DOCETAXEL. [Suspect]
     Active Substance: DOCETAXEL
     Indication: PENILE SQUAMOUS CELL CARCINOMA
     Dosage: 75 MG/M2 OF DOCETAXEL
     Route: 041
     Dates: start: 200701
  2. CISPLATIN. [Suspect]
     Active Substance: CISPLATIN
     Dosage: 75 MG/M2 OVER 2 HOURS OF INFUSION ON DAY 1
     Route: 041
  3. FLUOROURACIL. [Suspect]
     Active Substance: FLUOROURACIL
     Indication: PENILE SQUAMOUS CELL CARCINOMA
     Dosage: 96HOURS OF CONTINUOUS I.V. INFUSION OF 1000 MG/M2/D
     Route: 041
  4. CISPLATIN. [Suspect]
     Active Substance: CISPLATIN
     Indication: PENILE SQUAMOUS CELL CARCINOMA
     Dosage: 100 MG/M2 OVER 2 HOURS OF INFUSION ON DAY 1
     Route: 041
  5. PACLITAXEL. [Suspect]
     Active Substance: PACLITAXEL
     Indication: PENILE SQUAMOUS CELL CARCINOMA
     Dosage: 120 MG/M2, OVER 1 HOUR ON DAY
     Route: 041
     Dates: end: 200701
  6. FLUOROURACIL. [Suspect]
     Active Substance: FLUOROURACIL
     Dosage: 96HOURS OF CONTINUOUS I.V. INFUSION OF 750 MG/M2/D
     Route: 041

REACTIONS (1)
  - Cardiotoxicity [Fatal]
